FAERS Safety Report 23858652 (Version 1)
Quarter: 2024Q2

REPORT INFORMATION
  Report Type: Spontaneous
  Country: GB (occurrence: GB)
  Receive Date: 20240515
  Receipt Date: 20240515
  Transmission Date: 20240716
  Serious: Yes (Other)
  Sender: FDA-Public Use
  Company Number: None

PATIENT
  Age: 36 Year
  Sex: Female
  Weight: 67 kg

DRUGS (5)
  1. CLINDAMYCIN HYDROCHLORIDE [Suspect]
     Active Substance: CLINDAMYCIN HYDROCHLORIDE
     Dosage: TAKE ONE QDS
     Dates: start: 20240423, end: 20240428
  2. DERMOL [BENZALKONIUM CHLORIDE;CHLORHEXIDINE HYDROCHLORIDE;ISOPROPYL MY [Concomitant]
     Dosage: USE AS DIRECTED
     Dates: start: 20240425, end: 20240502
  3. DESOGESTREL [Concomitant]
     Active Substance: DESOGESTREL
     Dosage: TAKE ONE DAILY
     Dates: start: 20240210
  4. HYDROCORTISONE [Concomitant]
     Active Substance: HYDROCORTISONE
     Dosage: APPLY TWICE DAILY
     Dates: start: 20240425, end: 20240502
  5. LORATADINE [Concomitant]
     Active Substance: LORATADINE
     Dosage: TAKE ONE DAILY
     Dates: start: 20240425

REACTIONS (4)
  - Eye oedema [Unknown]
  - Rash pruritic [Unknown]
  - Skin swelling [Unknown]
  - Rash erythematous [Unknown]

NARRATIVE: CASE EVENT DATE: 20240101
